FAERS Safety Report 6534236-0 (Version None)
Quarter: 2010Q1

REPORT INFORMATION
  Report Type: 
  Country: None (occurrence: None)
  Receive Date: 20100112
  Receipt Date: 20100107
  Transmission Date: 20100710
  Serious: Yes (Death, Hospitalization, Other)
  Sender: FDA-Public Use
  Company Number: PHHY2009CA49125

PATIENT
  Sex: Male

DRUGS (2)
  1. CLOZARIL [Suspect]
     Dosage: UNK
     Dates: start: 20091106
  2. CLOZARIL [Suspect]
     Dosage: UNK
     Dates: start: 20091130, end: 20091218

REACTIONS (2)
  - CONVULSION [None]
  - DEATH [None]
